FAERS Safety Report 23451277 (Version 1)
Quarter: 2024Q1

REPORT INFORMATION
  Report Type: Spontaneous
  Country: US (occurrence: None)
  Receive Date: 20240127
  Receipt Date: 20240127
  Transmission Date: 20240409
  Serious: Yes (Disabling, Other)
  Sender: FDA-Public Use
  Company Number: None

PATIENT
  Age: 38 Year
  Sex: Female
  Weight: 50.85 kg

DRUGS (1)
  1. EQUATE ASPIRIN [Suspect]
     Active Substance: ASPIRIN
     Indication: Multiple allergies
     Dosage: 90 TABLETS DAILY ORAL?
     Route: 048
     Dates: start: 20230810, end: 20240122

REACTIONS (8)
  - Anxiety [None]
  - Dyspnoea [None]
  - Oesophageal disorder [None]
  - Muscle tightness [None]
  - Swollen tongue [None]
  - Tongue discomfort [None]
  - Scalloped tongue [None]
  - Angioedema [None]

NARRATIVE: CASE EVENT DATE: 20231223
